FAERS Safety Report 13400707 (Version 1)
Quarter: 2017Q2

REPORT INFORMATION
  Report Type: Spontaneous
  Country: GB (occurrence: GB)
  Receive Date: 20170404
  Receipt Date: 20170404
  Transmission Date: 20170830
  Serious: Yes (Other)
  Sender: FDA-Public Use
  Company Number: PHFR2017GB002121

PATIENT
  Age: 56 Year
  Sex: Male
  Weight: 98.87 kg

DRUGS (1)
  1. CARBAMAZEPINE. [Suspect]
     Active Substance: CARBAMAZEPINE
     Indication: TRIGEMINAL NEURALGIA
     Route: 048
     Dates: start: 20161104, end: 20161219

REACTIONS (5)
  - Pneumonitis [Unknown]
  - Influenza like illness [Unknown]
  - Malaise [Unknown]
  - Cough [Unknown]
  - Liver function test increased [Recovered/Resolved]

NARRATIVE: CASE EVENT DATE: 20161117
